FAERS Safety Report 9842445 (Version 1)
Quarter: 2013Q4

REPORT INFORMATION
  Report Type: Spontaneous
  Country: US (occurrence: None)
  Receive Date: 20131219
  Receipt Date: 20131219
  Transmission Date: 20140711
  Serious: Yes (Other)
  Sender: FDA-Public Use
  Company Number: 163-20785-13014875

PATIENT
  Age: 84 Year
  Sex: Female
  Weight: 52.62 kg

DRUGS (3)
  1. THALOMID (THALIDOMIDE) (100 MILLIGRAM, CAPSULES) [Suspect]
     Indication: PLASMA CELL MYELOMA
     Dosage: 100 MG, 1 IN 1 D, PO
     Route: 048
     Dates: start: 201205
  2. CYTOXAN (CYCLOPHOSPHAMIDE) (UNKNOWN) [Concomitant]
  3. CARFILZOMIB (CARFILZOMIB) (UNKNOWN) [Concomitant]

REACTIONS (1)
  - Plasma cell leukaemia [None]
